FAERS Safety Report 19233722 (Version 3)
Quarter: 2021Q2

REPORT INFORMATION
  Report Type: Report from Study
  Country: US (occurrence: US)
  Receive Date: 20210507
  Receipt Date: 20210611
  Transmission Date: 20210717
  Serious: Yes (Hospitalization, Other)
  Sender: FDA-Public Use
  Company Number: US-EMD SERONO-9179172

PATIENT
  Age: 55 Year
  Sex: Female

DRUGS (5)
  1. MAVENCLAD [Suspect]
     Active Substance: CLADRIBINE
     Indication: MULTIPLE SCLEROSIS
     Dosage: YEAR ONE MONTH ONE THERAPY
     Route: 048
     Dates: start: 20200730, end: 20200803
  2. PROCARDIA [Interacting]
     Active Substance: NIFEDIPINE
     Indication: HYPERTENSION
     Dates: end: 202008
  3. MAVENCLAD [Suspect]
     Active Substance: CLADRIBINE
     Dosage: YEAR ONE MONTH TWO THERAPY
     Route: 048
     Dates: start: 202008
  4. ATENOLOL. [Concomitant]
     Active Substance: ATENOLOL
     Indication: HYPERTENSION
  5. HYDRALAZINE [Suspect]
     Active Substance: HYDRALAZINE HYDROCHLORIDE
     Indication: HYPERTENSION
     Dates: start: 2020

REACTIONS (20)
  - Weight increased [Unknown]
  - Limb injury [Unknown]
  - Muscle spasticity [Not Recovered/Not Resolved]
  - Drug interaction [Unknown]
  - Post procedural infection [Recovered/Resolved]
  - Rash [Unknown]
  - Central nervous system infection [Recovered/Resolved]
  - Tremor [Unknown]
  - Heart rate increased [Recovering/Resolving]
  - Erythema [Unknown]
  - Dehydration [Unknown]
  - Hypertension [Recovering/Resolving]
  - Head injury [Unknown]
  - Dyspnoea [Unknown]
  - Gait disturbance [Unknown]
  - Balance disorder [Unknown]
  - Fall [Unknown]
  - Urinary tract infection [Unknown]
  - Movement disorder [Not Recovered/Not Resolved]
  - Peripheral swelling [Recovered/Resolved]

NARRATIVE: CASE EVENT DATE: 2020
